FAERS Safety Report 10459740 (Version 1)
Quarter: 2014Q3

REPORT INFORMATION
  Report Type: Spontaneous
  Country: US (occurrence: US)
  Receive Date: 20140917
  Receipt Date: 20140917
  Transmission Date: 20150326
  Serious: Yes (Hospitalization)
  Sender: FDA-Public Use
  Company Number: US-GLAXOSMITHKLINE-A1088647A

PATIENT
  Age: 69 Year
  Sex: Male

DRUGS (10)
  1. VENTOLIN [Suspect]
     Active Substance: ALBUTEROL SULFATE
     Indication: DYSPNOEA
     Dosage: 2PUFF AS REQUIRED
     Route: 055
  2. CHOLESTEROL REDUCING AGENT [Concomitant]
  3. ADVAIR HFA [Suspect]
     Active Substance: FLUTICASONE PROPIONATE\SALMETEROL XINAFOATE
     Indication: ASTHMA
     Dosage: 1PUFF PER DAY
     Route: 055
  4. PLAVIX [Concomitant]
     Active Substance: CLOPIDOGREL BISULFATE
  5. PROSTATE MEDICATION [Concomitant]
  6. HEART MEDICATION [Concomitant]
     Active Substance: UNSPECIFIED INGREDIENT
  7. BLOOD PRESSURE MEDICATION [Concomitant]
     Active Substance: UNSPECIFIED INGREDIENT
  8. PREDNISONE. [Concomitant]
     Active Substance: PREDNISONE
  9. INSULIN [Concomitant]
     Active Substance: INSULIN NOS
  10. WATER PILL [Concomitant]
     Active Substance: UNSPECIFIED INGREDIENT

REACTIONS (11)
  - Dyspnoea [Not Recovered/Not Resolved]
  - Fluid retention [Recovered/Resolved]
  - Prostatic operation [Recovered/Resolved]
  - Catheter placement [Recovered/Resolved]
  - Dehydration [Recovered/Resolved]
  - Overdose [Not Recovered/Not Resolved]
  - Coronary artery bypass [Recovered/Resolved]
  - Cardioversion [Recovered/Resolved]
  - Arrhythmia [Recovered/Resolved]
  - Cardiac stress test [Recovered/Resolved]
  - Catheterisation cardiac [Recovered/Resolved]

NARRATIVE: CASE EVENT DATE: 20070227
